FAERS Safety Report 6915332-2 (Version None)
Quarter: 2010Q3

REPORT INFORMATION
  Report Type: 
  Country: None (occurrence: None)
  Receive Date: 20100809
  Receipt Date: 20091105
  Transmission Date: 20110219
  Serious: No
  Sender: FDA-Public Use
  Company Number: US-ABBOTT-09P-163-0607542-00

PATIENT
  Sex: Male
  Weight: 59.02 kg

DRUGS (2)
  1. DEPAKOTE ER [Suspect]
     Indication: CONVULSION
     Dates: start: 20091007, end: 20091102
  2. DEPAKOTE ER [Suspect]
     Dates: start: 20091102

REACTIONS (3)
  - ANGER [None]
  - DRUG EFFECT DECREASED [None]
  - DRUG LEVEL DECREASED [None]
